FAERS Safety Report 9366153 (Version 1)
Quarter: 2013Q2

REPORT INFORMATION
  Report Type: Spontaneous
  Country: DE (occurrence: None)
  Receive Date: 20130619
  Receipt Date: 20130619
  Transmission Date: 20140414
  Serious: Yes (Congenital Anomaly)
  Sender: FDA-Public Use
  Company Number: DE-DEXPHARM-20130345

PATIENT
  Sex: Female

DRUGS (3)
  1. OMEPRAZOLE [Suspect]
     Indication: GASTROOESOPHAGEAL REFLUX DISEASE
     Route: 064
     Dates: start: 20110421, end: 20110519
  2. FOLIO FORTE [Concomitant]
  3. TEPILTA [Concomitant]

REACTIONS (8)
  - Atrial septal defect [None]
  - Hypotonia neonatal [None]
  - Hyperbilirubinaemia neonatal [None]
  - Apnoea neonatal [None]
  - Bradycardia neonatal [None]
  - Congenital arteriovenous fistula [None]
  - Caesarean section [None]
  - Maternal drugs affecting foetus [None]
